FAERS Safety Report 6407847-0 (Version None)
Quarter: 2009Q4

REPORT INFORMATION
  Report Type: 
  Country: None (occurrence: None)
  Receive Date: 20091015
  Receipt Date: 20091006
  Transmission Date: 20100525
  Serious: Yes (Hospitalization)
  Sender: FDA-Public Use
  Company Number: FABR-1001005

PATIENT
  Age: 48 Year
  Sex: Male
  Weight: 62.2 kg

DRUGS (1)
  1. FABRAZYME [Suspect]
     Indication: FABRY'S DISEASE
     Dosage: 65 MG, Q2W, INTRAVENOUS
     Route: 042
     Dates: start: 20090205

REACTIONS (1)
  - SYNCOPE [None]
